FAERS Safety Report 11103190 (Version 1)
Quarter: 2015Q2

REPORT INFORMATION
  Report Type: Spontaneous
  Country: US (occurrence: US)
  Receive Date: 20150511
  Receipt Date: 20150511
  Transmission Date: 20150821
  Serious: No
  Sender: FDA-Public Use
  Company Number: US-BIOGENIDEC-2015BI059411

PATIENT
  Age: 70 Year
  Sex: Female

DRUGS (18)
  1. CRESTOR [Concomitant]
     Active Substance: ROSUVASTATIN CALCIUM
  2. HYDROCHLOROTHIAZIDE. [Concomitant]
     Active Substance: HYDROCHLOROTHIAZIDE
  3. PROTONIX [Concomitant]
     Active Substance: PANTOPRAZOLE SODIUM
  4. LATANOPROST. [Concomitant]
     Active Substance: LATANOPROST
  5. PROPYLENE GLYCOL [Concomitant]
     Active Substance: PROPYLENE GLYCOL
  6. AMPYRA [Concomitant]
     Active Substance: DALFAMPRIDINE
  7. TECFIDERA [Suspect]
     Active Substance: DIMETHYL FUMARATE
     Indication: MULTIPLE SCLEROSIS
     Route: 048
  8. AMITRIPTYLINE HCL [Concomitant]
     Active Substance: AMITRIPTYLINE
  9. BUSPIRONE HCL [Concomitant]
     Active Substance: BUSPIRONE HYDROCHLORIDE
  10. TIZANIDINE HCL [Concomitant]
     Active Substance: TIZANIDINE HYDROCHLORIDE
  11. ALEVE [Concomitant]
     Active Substance: NAPROXEN SODIUM
  12. GLUCOSAMINE-CHONDROITIN [Concomitant]
     Active Substance: CHONDROITIN SULFATE (BOVINE)\GLUCOSAMINE SULFATE
  13. SYNTHROID [Concomitant]
     Active Substance: LEVOTHYROXINE SODIUM
  14. KETOCONAZOLE. [Concomitant]
     Active Substance: KETOCONAZOLE
  15. RAMIPRIL. [Concomitant]
     Active Substance: RAMIPRIL
  16. AMITIZA [Concomitant]
     Active Substance: LUBIPROSTONE
  17. LUTEIN [Concomitant]
     Active Substance: LUTEIN
  18. VITAMIN D (CHOLECALCIFEROL) [Concomitant]

REACTIONS (1)
  - Drug ineffective [Unknown]
